FAERS Safety Report 6789681-5 (Version None)
Quarter: 2010Q2

REPORT INFORMATION
  Report Type: 
  Country: None (occurrence: None)
  Receive Date: 20100624
  Receipt Date: 20100611
  Transmission Date: 20101027
  Serious: Yes (Other)
  Sender: FDA-Public Use
  Company Number: US-JNJCH-2010011002

PATIENT
  Age: 2 Year
  Sex: Male
  Weight: 12.7 kg

DRUGS (2)
  1. CHILDREN'S ZYRTEC ALLERGY [Suspect]
     Indication: SEASONAL ALLERGY
     Dosage: TEXT:1/2 TEASPOONFUL 1X PER DAY
     Route: 048
     Dates: start: 20100502, end: 20100502
  2. PREVACID [Concomitant]
     Indication: GASTROOESOPHAGEAL REFLUX DISEASE
     Dosage: TEXT:5ML 1X A DAY
     Route: 065

REACTIONS (3)
  - BRONCHIOLITIS [None]
  - PRODUCT QUALITY ISSUE [None]
  - VOMITING [None]
